FAERS Safety Report 17976026 (Version 2)
Quarter: 2020Q3

REPORT INFORMATION
  Report Type: Spontaneous
  Country: AU (occurrence: AU)
  Receive Date: 20200702
  Receipt Date: 20200827
  Transmission Date: 20201103
  Serious: Yes (Hospitalization, Other)
  Sender: FDA-Public Use
  Company Number: AU-PFIZER INC-2020254609

PATIENT
  Age: 57 Year
  Sex: Female

DRUGS (1)
  1. XELJANZ [Suspect]
     Active Substance: TOFACITINIB CITRATE
     Indication: RHEUMATOID ARTHRITIS
     Dosage: 5 MG, 2X/DAY (BD)
     Dates: start: 20200128

REACTIONS (11)
  - Blood pressure fluctuation [Recovering/Resolving]
  - Dysgeusia [Unknown]
  - Syncope [Recovering/Resolving]
  - Condition aggravated [Recovering/Resolving]
  - Limb discomfort [Recovering/Resolving]
  - Pain [Recovering/Resolving]
  - Urinary incontinence [Recovering/Resolving]
  - Fatigue [Unknown]
  - Blood cholesterol increased [Unknown]
  - Feeling abnormal [Unknown]
  - Vomiting [Recovering/Resolving]

NARRATIVE: CASE EVENT DATE: 20200618
